FAERS Safety Report 5600627-5 (Version None)
Quarter: 2008Q1

REPORT INFORMATION
  Report Type: 
  Country: None (occurrence: None)
  Receive Date: 20080123
  Receipt Date: 20080109
  Transmission Date: 20080703
  Serious: Yes (Other)
  Sender: FDA-Public Use
  Company Number: DE-GENENTECH-253313

PATIENT
  Sex: Female
  Weight: 68 kg

DRUGS (2)
  1. HERCEPTIN [Suspect]
     Indication: BREAST CANCER
     Dosage: 6 MG/KG, Q3W
     Route: 042
     Dates: start: 20070901, end: 20071201
  2. TAMOXIFEN [Suspect]
     Indication: BREAST CANCER

REACTIONS (4)
  - EMBOLISM [None]
  - GLOMERULONEPHRITIS [None]
  - NECROSIS [None]
  - VASCULITIS [None]
